FAERS Safety Report 6642711-3 (Version None)
Quarter: 2010Q1

REPORT INFORMATION
  Report Type: 
  Country: None (occurrence: None)
  Receive Date: 20100319
  Receipt Date: 20100317
  Transmission Date: 20100710
  Serious: Yes (Hospitalization)
  Sender: FDA-Public Use
  Company Number: US-WYE-H14163710

PATIENT
  Age: 56 Year
  Sex: Male

DRUGS (2)
  1. TORISEL [Suspect]
     Indication: RENAL CELL CARCINOMA
     Dosage: 25 MG, DAYS 1, 8, 15, 22
     Route: 042
     Dates: start: 20091113, end: 20100219
  2. BEVACIZUMAB [Suspect]
     Indication: RENAL CELL CARCINOMA
     Dosage: 10 MG/KG, DAY 1, 15
     Route: 042
     Dates: start: 20091113, end: 20100219

REACTIONS (3)
  - ASTHENIA [None]
  - DEHYDRATION [None]
  - DYSPNOEA [None]
